FAERS Safety Report 22104239 (Version 2)
Quarter: 2023Q1

REPORT INFORMATION
  Report Type: Spontaneous
  Country: IT (occurrence: IT)
  Receive Date: 20230316
  Receipt Date: 20230330
  Transmission Date: 20230418
  Serious: Yes (Life-Threatening, Hospitalization)
  Sender: FDA-Public Use
  Company Number: IT-TEVA-2023-IT-2866262

PATIENT
  Sex: Male

DRUGS (7)
  1. FENTANYL [Suspect]
     Active Substance: FENTANYL
     Indication: Therapeutic hypothermia
     Dosage: CONTINUOUS INFUSION WAS STARTED [1 MICROG/(KG.H), TITRATED UP TO 3 MICROG/(KG.H)]
     Route: 050
  2. LEVETIRACETAM [Suspect]
     Active Substance: LEVETIRACETAM
     Indication: Seizure
     Dosage: LOAD DOSE OF 20 MG/KG
     Route: 065
  3. LEVETIRACETAM [Suspect]
     Active Substance: LEVETIRACETAM
     Dosage: 60 MG/KG DAILY; MAINTENANCE DOSE ONCE DAILY
     Route: 065
  4. PHENOBARBITAL [Suspect]
     Active Substance: PHENOBARBITAL
     Indication: Seizure
     Dosage: LOAD DOSE OF 20 MG/KG
     Route: 065
  5. PHENOBARBITAL [Suspect]
     Active Substance: PHENOBARBITAL
     Dosage: 5 MG/KG DAILY; MAINTENANCE DOSE ONCE DAILY
     Route: 065
  6. MIDAZOLAM [Suspect]
     Active Substance: MIDAZOLAM
     Indication: Seizure
     Dosage: 1.44 MG/KG DAILY; 0.06 MG/(KG.H) CONTINUOUS INFUSION
     Route: 050
  7. MIDAZOLAM [Suspect]
     Active Substance: MIDAZOLAM
     Dosage: 5.76 MG/KG DAILY; TITRATED UP TO 0.24 MG/(KG.H)
     Route: 065

REACTIONS (3)
  - Coma [Recovered/Resolved]
  - Misleading laboratory test result [Recovered/Resolved]
  - Drug ineffective [Unknown]
